FAERS Safety Report 8402779-0 (Version None)
Quarter: 2012Q2

REPORT INFORMATION
  Report Type: 
  Country: None (occurrence: None)
  Receive Date: 20120601
  Receipt Date: 20120524
  Transmission Date: 20120825
  Serious: Yes (Death)
  Sender: FDA-Public Use
  Company Number: IT-ROCHE-1071493

PATIENT
  Sex: Female

DRUGS (7)
  1. LASIX [Concomitant]
     Route: 048
  2. DELAPRIL HYDROCHLORIDE AND INDAPAMIDE [Suspect]
     Indication: HYPERTENSION
     Route: 048
     Dates: start: 20100914, end: 20120509
  3. ACTEMRA [Suspect]
     Dates: start: 20100914, end: 20120410
  4. ACTEMRA [Suspect]
     Indication: RHEUMATOID ARTHRITIS
     Route: 042
     Dates: start: 20100914, end: 20120410
  5. ALLOPURINOL [Concomitant]
     Route: 048
  6. METHOTREXATE [Suspect]
     Indication: RHEUMATOID ARTHRITIS
     Route: 048
     Dates: start: 20111108, end: 20120509
  7. OSSEOR [Concomitant]
     Route: 048

REACTIONS (7)
  - PYREXIA [None]
  - ARTHRALGIA [None]
  - ASTHENIA [None]
  - ORAL CANDIDIASIS [None]
  - DYSPNOEA [None]
  - OROPHARYNGEAL PAIN [None]
  - SUDDEN DEATH [None]
